FAERS Safety Report 10210931 (Version 1)
Quarter: 2014Q2

REPORT INFORMATION
  Report Type: Spontaneous
  Country: FR (occurrence: FR)
  Receive Date: 20140602
  Receipt Date: 20140602
  Transmission Date: 20141212
  Serious: Yes (Hospitalization, Other)
  Sender: FDA-Public Use
  Company Number: FR-BRISTOL-MYERS SQUIBB COMPANY-20847240

PATIENT
  Age: 22 Year
  Sex: Male
  Weight: 88 kg

DRUGS (2)
  1. ABILIFY TABS 5 MG [Suspect]
     Indication: PSYCHOTIC DISORDER
     Dosage: 5MG (SEP2011-UNK.DATE):10MG(UNK2013-UNK)?20MG(SEP2013- UNK.DATE)
     Route: 048
     Dates: start: 201109
  2. PAROXETINE [Concomitant]

REACTIONS (9)
  - Psychotic disorder [Unknown]
  - Aggression [Unknown]
  - Weight increased [Unknown]
  - Blood triglycerides increased [Unknown]
  - High density lipoprotein decreased [Unknown]
  - Dyskinesia [Unknown]
  - Intentional product misuse [Unknown]
  - Off label use [Unknown]
  - Wrong technique in drug usage process [Unknown]
